FAERS Safety Report 23172888 (Version 1)
Quarter: 2023Q4

REPORT INFORMATION
  Report Type: Spontaneous
  Country: GB (occurrence: GB)
  Receive Date: 20231110
  Receipt Date: 20231110
  Transmission Date: 20240109
  Serious: Yes (Life-Threatening)
  Sender: FDA-Public Use
  Company Number: None

PATIENT
  Age: 30 Year
  Sex: Female
  Weight: 64 kg

DRUGS (1)
  1. SIROLIMUS [Suspect]
     Active Substance: SIROLIMUS
     Indication: Allogenic stem cell transplantation
     Dosage: UNK

REACTIONS (4)
  - Thrombotic microangiopathy [Not Recovered/Not Resolved]
  - Acute kidney injury [Unknown]
  - Proteinuria [Unknown]
  - Off label use [Unknown]

NARRATIVE: CASE EVENT DATE: 20231010
